FAERS Safety Report 23089042 (Version 1)
Quarter: 2023Q4

REPORT INFORMATION
  Report Type: Spontaneous
  Country: CN (occurrence: CN)
  Receive Date: 20231020
  Receipt Date: 20231020
  Transmission Date: 20240109
  Serious: Yes (Other)
  Sender: FDA-Public Use
  Company Number: CN-PFIZER INC-PV202300172248

PATIENT
  Age: 31 Year
  Sex: Female
  Weight: 56 kg

DRUGS (2)
  1. CARBOPROST TROMETHAMINE [Suspect]
     Active Substance: CARBOPROST TROMETHAMINE
     Dosage: 250 UG, 1X/DAY
     Route: 030
     Dates: start: 20231013, end: 20231013
  2. OXYTOCIN [Concomitant]
     Active Substance: OXYTOCIN
     Dosage: 10 IU, 1X/DAY
     Route: 041
     Dates: start: 20231013, end: 20231013

REACTIONS (4)
  - Asthenia [Recovered/Resolved]
  - Flushing [Recovered/Resolved]
  - Palpitations [Recovered/Resolved]
  - Blood pressure decreased [Recovered/Resolved]

NARRATIVE: CASE EVENT DATE: 20231013
